FAERS Safety Report 5249422-X (Version None)
Quarter: 2007Q1

REPORT INFORMATION
  Report Type: 
  Country: None (occurrence: None)
  Receive Date: 20070228
  Receipt Date: 20061127
  Transmission Date: 20070707
  Serious: Yes (Hospitalization, Other)
  Sender: FDA-Public Use
  Company Number: US-GLAXOSMITHKLINE-A0623961A

PATIENT
  Age: 36 Year
  Sex: Female
  Weight: 65.9 kg

DRUGS (3)
  1. VALTREX [Suspect]
     Indication: ANTIVIRAL PROPHYLAXIS
     Dosage: 500MG PER DAY
     Route: 048
     Dates: start: 20060412, end: 20060516
  2. PRENATAL VITAMINS [Concomitant]
  3. IMITREX [Concomitant]
     Indication: MIGRAINE
     Dates: start: 20051205

REACTIONS (2)
  - DRUG INEFFECTIVE [None]
  - NORMAL DELIVERY [None]
